FAERS Safety Report 23424672 (Version 2)
Quarter: 2024Q1

REPORT INFORMATION
  Report Type: Report from Study
  Country: EG (occurrence: EG)
  Receive Date: 20240120
  Receipt Date: 20240221
  Transmission Date: 20240409
  Serious: Yes (Other)
  Sender: FDA-Public Use
  Company Number: EG-002147023-NVSC2024EG009920

PATIENT
  Age: 60 Year
  Sex: Female

DRUGS (3)
  1. GILENYA [Suspect]
     Active Substance: FINGOLIMOD HYDROCHLORIDE
     Indication: Multiple sclerosis
     Dosage: 1 CAPSULE, QD
     Route: 048
     Dates: start: 201606
  2. VENLAFAXINE HYDROCHLORIDE [Concomitant]
     Active Substance: VENLAFAXINE HYDROCHLORIDE
     Indication: Feeling of relaxation
     Dosage: 1 CAPSULE, QD
     Route: 065
     Dates: start: 2011
  3. LEVOTHYROXINE [Concomitant]
     Active Substance: LEVOTHYROXINE\LEVOTHYROXINE SODIUM
     Indication: Thyroidectomy
     Dosage: 1 TABLET, QD
     Route: 065

REACTIONS (1)
  - Neoplasm malignant [Recovering/Resolving]

NARRATIVE: CASE EVENT DATE: 20230501
